FAERS Safety Report 25373565 (Version 2)
Quarter: 2025Q3

REPORT INFORMATION
  Report Type: Report from Study
  Country: US (occurrence: US)
  Receive Date: 20250529
  Receipt Date: 20250728
  Transmission Date: 20251021
  Serious: Yes (Hospitalization)
  Sender: NOVARTIS
  Company Number: US-002147023-NVSC2025US053807

PATIENT
  Sex: Female

DRUGS (2)
  1. KESIMPTA [Suspect]
     Active Substance: OFATUMUMAB
     Indication: Multiple sclerosis
     Route: 065
  2. KESIMPTA [Suspect]
     Active Substance: OFATUMUMAB
     Dosage: 20 MG, QMO
     Route: 058
     Dates: start: 20250101

REACTIONS (7)
  - Pyrexia [Unknown]
  - Pneumonia [Unknown]
  - Illness [Unknown]
  - Sinusitis [Unknown]
  - Influenza [Unknown]
  - Streptococcal infection [Unknown]
  - Dyspnoea [Unknown]
